FAERS Safety Report 9184105 (Version 1)
Quarter: 2012Q4

REPORT INFORMATION
  Report Type: 
  Country: MX (occurrence: MX)
  Receive Date: 20121031
  Receipt Date: 20121031
  Transmission Date: 20130627
  Serious: Yes (Other)
  Sender: FDA-Public Use
  Company Number: PHHY2012MX097987

PATIENT
  Age: 70 None
  Sex: Female

DRUGS (1)
  1. CO-DIOVAN [Suspect]
     Indication: HYPERTENSION
     Dosage: 01 DF, UNK
     Dates: start: 20080612

REACTIONS (3)
  - Diabetes mellitus [Unknown]
  - Blood glucose increased [Unknown]
  - Gingival disorder [Recovered/Resolved]
